FAERS Safety Report 25740478 (Version 1)
Quarter: 2025Q3

REPORT INFORMATION
  Report Type: Spontaneous
  Country: US (occurrence: US)
  Receive Date: 20250829
  Receipt Date: 20250829
  Transmission Date: 20251020
  Serious: No
  Sender: PFIZER
  Company Number: US-PFIZER INC-PV202500102089

PATIENT
  Age: 66 Year
  Sex: Female

DRUGS (35)
  1. ZITHROMAX [Suspect]
     Active Substance: AZITHROMYCIN DIHYDRATE
  2. ALBUTEROL [Concomitant]
     Active Substance: ALBUTEROL
  3. ASPIRIN [Concomitant]
     Active Substance: ASPIRIN
  4. LIPITOR [Concomitant]
     Active Substance: ATORVASTATIN CALCIUM
  5. LOTENSIN [Concomitant]
     Active Substance: BENAZEPRIL HYDROCHLORIDE
  6. CALCIUM CARBONATE\CHOLECALCIFEROL [Concomitant]
     Active Substance: CALCIUM CARBONATE\CHOLECALCIFEROL
  7. CHOLECALCIFEROL [Concomitant]
     Active Substance: CHOLECALCIFEROL
  8. VITAMIN D3 [Concomitant]
     Active Substance: CHOLECALCIFEROL
  9. PLETAL [Concomitant]
     Active Substance: CILOSTAZOL
  10. TIAZAC [Concomitant]
     Active Substance: DILTIAZEM HYDROCHLORIDE
  11. PEPCID [Concomitant]
     Active Substance: FAMOTIDINE
  12. LIDEX [Concomitant]
     Active Substance: FLUOCINONIDE
  13. FLUOCINONIDE [Concomitant]
     Active Substance: FLUOCINONIDE
  14. EFUDEX [Concomitant]
     Active Substance: FLUOROURACIL
  15. MUCINEX [Concomitant]
     Active Substance: GUAIFENESIN
     Dosage: 600 MG, 2X/DAY
  16. NORCO [Concomitant]
     Active Substance: ACETAMINOPHEN\HYDROCODONE BITARTRATE
  17. SYNTHROID [Concomitant]
     Active Substance: LEVOTHYROXINE SODIUM
  18. DOLOPHINE [Concomitant]
     Active Substance: METHADONE HYDROCHLORIDE
  19. LOPRESSOR [Concomitant]
     Active Substance: METOPROLOL TARTRATE
  20. SINGULAIR [Concomitant]
     Active Substance: MONTELUKAST SODIUM
  21. VITAMINS [Concomitant]
     Active Substance: VITAMINS
     Route: 048
  22. BACTROBAN [Concomitant]
     Active Substance: MUPIROCIN CALCIUM
  23. NITROSTAT [Concomitant]
     Active Substance: NITROGLYCERIN
  24. ZOFRAN [Concomitant]
     Active Substance: ONDANSETRON HYDROCHLORIDE
  25. POTASSIUM [Concomitant]
     Active Substance: POTASSIUM
  26. DEXAMETHASONE [Concomitant]
     Active Substance: DEXAMETHASONE
  27. DALIRESP [Concomitant]
     Active Substance: ROFLUMILAST
  28. DALIRESP [Concomitant]
     Active Substance: ROFLUMILAST
  29. BACTRIM DS [Concomitant]
     Active Substance: SULFAMETHOXAZOLE\TRIMETHOPRIM
  30. ANORO ELLIPTA [Concomitant]
     Active Substance: UMECLIDINIUM BROMIDE\VILANTEROL TRIFENATATE
  31. VENTOLIN HFA [Concomitant]
     Active Substance: ALBUTEROL SULFATE
  32. ERIVEDGE [Concomitant]
     Active Substance: VISMODEGIB
  33. REMDESIVIR [Concomitant]
     Active Substance: REMDESIVIR
     Route: 042
  34. SODIUM CHLORIDE [Concomitant]
     Active Substance: SODIUM CHLORIDE
  35. DECADRON [Concomitant]
     Active Substance: DEXAMETHASONE

REACTIONS (1)
  - Dyspnoea [Unknown]
